FAERS Safety Report 4632518-0 (Version None)
Quarter: 2005Q2

REPORT INFORMATION
  Report Type: 
  Country: None (occurrence: None)
  Receive Date: 20050411
  Receipt Date: 20050325
  Transmission Date: 20051028
  Serious: Yes (Life-Threatening, Hospitalization, Disabling)
  Sender: FDA-Public Use
  Company Number: 2005AL001206

PATIENT
  Age: 6 Year
  Sex: Male
  Weight: 18.5068 kg

DRUGS (5)
  1. IBUPROFEN [Suspect]
     Indication: PYREXIA
     Dosage: 150 MG; Q6H; PO
     Route: 048
     Dates: start: 20030305, end: 20030306
  2. MOTRIN [Suspect]
     Indication: PYREXIA
     Dates: start: 20030227
  3. TOBREX [Concomitant]
  4. ZITHROMAX [Concomitant]
  5. PANHIST DM SYRUP [Concomitant]

REACTIONS (23)
  - ASTHMA [None]
  - BLINDNESS UNILATERAL [None]
  - BLOOD PRESSURE INCREASED [None]
  - BRONCHITIS [None]
  - COMA [None]
  - CONSTIPATION [None]
  - DERMATITIS BULLOUS [None]
  - DISCOMFORT [None]
  - DRUG HYPERSENSITIVITY [None]
  - DRUG TOXICITY [None]
  - DYSPNOEA [None]
  - FACE OEDEMA [None]
  - GASTROENTERITIS [None]
  - LUNG TRANSPLANT [None]
  - OBLITERATIVE BRONCHIOLITIS [None]
  - OXYGEN SATURATION DECREASED [None]
  - PARALYSIS [None]
  - REFUSAL OF TREATMENT BY PATIENT [None]
  - RESPIRATORY FAILURE [None]
  - STEVENS-JOHNSON SYNDROME [None]
  - TACHYCARDIA [None]
  - UPPER RESPIRATORY TRACT INFECTION [None]
  - WHITE BLOOD CELL DISORDER [None]
